FAERS Safety Report 8101159 (Version 3)
Quarter: 2013Q3

REPORT INFORMATION
  Report Type: Spontaneous
  Country: US (occurrence: US)
  Receive Date: 20110823
  Receipt Date: 20130827
  Transmission Date: 20140515
  Serious: No
  Sender: FDA-Public Use
  Company Number: US-BIOGENIDEC-2011BI031309

PATIENT
  Age: 49 Year
  Sex: Male

DRUGS (1)
  1. AVONEX [Suspect]
     Indication: MULTIPLE SCLEROSIS
     Route: 030
     Dates: start: 20100528, end: 20110624

REACTIONS (6)
  - Apathy [Not Recovered/Not Resolved]
  - Adverse event [Unknown]
  - Depression [Recovered/Resolved]
  - Drug ineffective [Recovered/Resolved]
  - Influenza like illness [Recovered/Resolved]
  - Anxiety [Unknown]
